FAERS Safety Report 25645307 (Version 1)
Quarter: 2025Q3

REPORT INFORMATION
  Report Type: Spontaneous
  Country: US (occurrence: None)
  Receive Date: 20250805
  Receipt Date: 20250805
  Transmission Date: 20251021
  Serious: Yes (Hospitalization)
  Sender: FDA-CTU
  Company Number: None

PATIENT
  Age: 67 Year
  Sex: Female

DRUGS (1)
  1. ISENTRESS [Suspect]
     Active Substance: RALTEGRAVIR POTASSIUM
     Indication: Asymptomatic HIV infection
     Dosage: OTHER QUANTITY : ISENTRESS: 400MG TRUVADA: 200-300MG;?FREQUENCY : DAILY?

REACTIONS (1)
  - Hospitalisation [None]
